FAERS Safety Report 12633651 (Version 1)
Quarter: 2016Q3

REPORT INFORMATION
  Report Type: Spontaneous
  Country: BR (occurrence: BR)
  Receive Date: 20160809
  Receipt Date: 20160809
  Transmission Date: 20161109
  Serious: Yes (Disabling, Other)
  Sender: FDA-Public Use
  Company Number: BR-009507513-1608BRA003386

PATIENT
  Sex: Male
  Weight: 82 kg

DRUGS (2)
  1. JANUMET XR [Suspect]
     Active Substance: METFORMIN HYDROCHLORIDE\SITAGLIPTIN PHOSPHATE
     Indication: DIABETES MELLITUS
     Route: 048
  2. JANUMET [Suspect]
     Active Substance: METFORMIN HYDROCHLORIDE\SITAGLIPTIN PHOSPHATE
     Indication: DIABETES MELLITUS
     Dosage: 1 DF(50/850 MG OR 50/100 MG), BID
     Route: 048

REACTIONS (4)
  - Infarction [Unknown]
  - Cerebrovascular accident [Unknown]
  - Wrong drug administered [Unknown]
  - Cardiac operation [Unknown]
